FAERS Safety Report 14906299 (Version 1)
Quarter: 2018Q2

REPORT INFORMATION
  Report Type: Spontaneous
  Country: US (occurrence: US)
  Receive Date: 20180517
  Receipt Date: 20180517
  Transmission Date: 20180711
  Serious: No
  Sender: FDA-Public Use
  Company Number: US-SA-2018SA085559

PATIENT
  Age: 66 Year
  Sex: Female

DRUGS (4)
  1. PLETAAL [Suspect]
     Active Substance: CILOSTAZOL
     Indication: BLOOD DISORDER
     Route: 065
     Dates: start: 20170508, end: 20170512
  2. LANTUS [Suspect]
     Active Substance: INSULIN GLARGINE
     Indication: DIABETES MELLITUS
     Route: 051
  3. LOSARTAN. [Suspect]
     Active Substance: LOSARTAN
     Indication: CARDIAC DISORDER
     Route: 065
  4. GALVUS [Suspect]
     Active Substance: VILDAGLIPTIN
     Route: 065

REACTIONS (1)
  - Oedema peripheral [Unknown]

NARRATIVE: CASE EVENT DATE: 20170810
